FAERS Safety Report 9244323 (Version 1)
Quarter: 2013Q2

REPORT INFORMATION
  Report Type: Spontaneous
  Country: US (occurrence: US)
  Receive Date: 20130418
  Receipt Date: 20130418
  Transmission Date: 20140414
  Serious: Yes (Hospitalization, Other)
  Sender: FDA-Public Use
  Company Number: US-RB-052287-13

PATIENT
  Sex: Female

DRUGS (1)
  1. SUBOXONE TABLET [Suspect]
     Indication: DRUG DEPENDENCE
     Route: 064
     Dates: start: 201204, end: 20130114

REACTIONS (3)
  - Foetal exposure during pregnancy [Recovered/Resolved]
  - Contusion [Not Recovered/Not Resolved]
  - Rib fracture [Not Recovered/Not Resolved]
